FAERS Safety Report 6676208-1 (Version None)
Quarter: 2010Q2

REPORT INFORMATION
  Report Type: 
  Country: None (occurrence: None)
  Receive Date: 20100412
  Receipt Date: 20100401
  Transmission Date: 20101027
  Serious: Yes (Hospitalization)
  Sender: FDA-Public Use
  Company Number: US-JNJFOC-20091201713

PATIENT
  Sex: Female
  Weight: 54.43 kg

DRUGS (4)
  1. DURAGESIC-100 [Suspect]
     Indication: IDIOPATHIC PULMONARY FIBROSIS
     Route: 062
     Dates: start: 20050101, end: 20091001
  2. DURAGESIC-100 [Suspect]
     Route: 062
  3. DURAGESIC-100 [Suspect]
     Route: 062
  4. UNKNOWN MEDICATION [Concomitant]

REACTIONS (8)
  - BODY HEIGHT DECREASED [None]
  - DIARRHOEA [None]
  - FATIGUE [None]
  - INADEQUATE ANALGESIA [None]
  - MALAISE [None]
  - PRODUCT ADHESION ISSUE [None]
  - SPINAL FRACTURE [None]
  - WRONG TECHNIQUE IN DRUG USAGE PROCESS [None]
